FAERS Safety Report 15907739 (Version 1)
Quarter: 2019Q1

REPORT INFORMATION
  Report Type: Spontaneous
  Country: US (occurrence: US)
  Receive Date: 20190204
  Receipt Date: 20190204
  Transmission Date: 20190417
  Serious: Yes (Disabling)
  Sender: FDA-Public Use
  Company Number: None

PATIENT
  Age: 68 Year
  Sex: Male
  Weight: 107.1 kg

DRUGS (10)
  1. CIPROFLOXACIN HCL 500 MG [Suspect]
     Active Substance: CIPROFLOXACIN HYDROCHLORIDE
     Indication: URINARY TRACT INFECTION
     Dosage: ?          QUANTITY:1 TABLET(S);?
     Route: 048
     Dates: start: 20180709, end: 20180714
  2. WARFARIN [Concomitant]
     Active Substance: WARFARIN
  3. LOSARTAN. [Concomitant]
     Active Substance: LOSARTAN
  4. CARVEDILOL. [Concomitant]
     Active Substance: CARVEDILOL
  5. COQ10 [Concomitant]
     Active Substance: UBIDECARENONE
  6. FISHOIL [Concomitant]
  7. AREDS 2 [Concomitant]
     Active Substance: MINERALS\VITAMINS
  8. VITAMIN D [Concomitant]
     Active Substance: CHOLECALCIFEROL
  9. ATORVASTATIN [Concomitant]
     Active Substance: ATORVASTATIN
  10. BABY ASPIRIN [Concomitant]
     Active Substance: ASPIRIN

REACTIONS (4)
  - Neuropathy peripheral [None]
  - Balance disorder [None]
  - Injury [None]
  - Tendon pain [None]

NARRATIVE: CASE EVENT DATE: 20180709
